FAERS Safety Report 26205194 (Version 1)
Quarter: 2025Q4

REPORT INFORMATION
  Report Type: Spontaneous
  Country: US (occurrence: US)
  Receive Date: 20251228
  Receipt Date: 20251228
  Transmission Date: 20260118
  Serious: Yes (Other)
  Sender: MARINUS PHARMACEUTICALS
  Company Number: None

PATIENT

DRUGS (20)
  1. GANAXOLONE [Suspect]
     Active Substance: GANAXOLONE
     Indication: Status epilepticus
     Dosage: UNK
     Route: 065
  2. LEVETIRACETAM [Suspect]
     Active Substance: LEVETIRACETAM
     Indication: Generalised tonic-clonic seizure
     Dosage: UNK
  3. LEVETIRACETAM [Suspect]
     Active Substance: LEVETIRACETAM
     Indication: Status epilepticus
  4. LACOSAMIDE [Suspect]
     Active Substance: LACOSAMIDE
     Indication: Status epilepticus
     Route: 065
  5. FOSPHENYTOIN [Suspect]
     Active Substance: FOSPHENYTOIN
     Indication: Status epilepticus
     Dosage: UNK
  6. PERAMPANEL [Suspect]
     Active Substance: PERAMPANEL
     Indication: Status epilepticus
     Dosage: UNK
     Route: 065
  7. CLOBAZAM [Suspect]
     Active Substance: CLOBAZAM
     Indication: Status epilepticus
     Dosage: UNK
  8. BRIVARACETAM [Suspect]
     Active Substance: BRIVARACETAM
     Indication: Status epilepticus
     Dosage: UNK
     Route: 065
  9. CENOBAMATE [Suspect]
     Active Substance: CENOBAMATE
     Indication: Status epilepticus
     Dosage: UNK
     Route: 065
  10. FELBAMATE [Suspect]
     Active Substance: FELBAMATE
     Indication: Status epilepticus
     Dosage: UNK
     Route: 065
  11. MIDAZOLAM [Suspect]
     Active Substance: MIDAZOLAM
     Indication: Anaesthesia
     Dosage: UNK
     Route: 042
  12. ANAKINRA [Concomitant]
     Active Substance: ANAKINRA
     Indication: Immunodeficiency
     Dosage: 4 MILLIGRAM/KILOGRAM
  13. ANAKINRA [Concomitant]
     Active Substance: ANAKINRA
     Dosage: 8 MILLIGRAM/KILOGRAM
  14. BARICITINIB [Concomitant]
     Active Substance: BARICITINIB
     Indication: Immunodeficiency
     Dosage: 4 MILLIGRAM
  15. BARICITINIB [Concomitant]
     Active Substance: BARICITINIB
     Dosage: 2 MILLIGRAM
  16. IMMUNE GLOBULIN NOS [Concomitant]
     Active Substance: IMMUNE GLOBULIN NOS
     Indication: Immunodeficiency
     Dosage: 2 GRAM PER KILOGRAM
     Route: 042
  17. KETAMINE [Concomitant]
     Active Substance: KETAMINE
     Dosage: UNK
     Route: 042
  18. METHYLPREDNISOLONE [Concomitant]
     Active Substance: METHYLPREDNISOLONE
     Indication: Immunodeficiency
     Dosage: 3 GRAM, QD
     Route: 042
  19. PENTOBARBITAL [Concomitant]
     Active Substance: PENTOBARBITAL
     Indication: Anaesthesia
     Route: 042
  20. TOCILIZUMAB [Concomitant]
     Active Substance: TOCILIZUMAB
     Indication: Immunodeficiency
     Dosage: 8 MILLIGRAM/KILOGRAM, QD

REACTIONS (7)
  - Drug-induced liver injury [Unknown]
  - Pneumonia [Unknown]
  - Bacteraemia [Unknown]
  - Urinary tract infection [Unknown]
  - Tracheitis [Unknown]
  - Antimicrobial susceptibility test resistant [Unknown]
  - Off label use [Unknown]
